FAERS Safety Report 11989381 (Version 2)
Quarter: 2016Q1

REPORT INFORMATION
  Report Type: Report from Study
  Country: NL (occurrence: NL)
  Receive Date: 20160202
  Receipt Date: 20160203
  Transmission Date: 20160526
  Serious: Yes (Other)
  Sender: FDA-Public Use
  Company Number: NL-AMGEN-NLDSL2016009859

PATIENT
  Sex: Female

DRUGS (2)
  1. CALCIUMCARBONAT [Concomitant]
     Dosage: 500 MG (1.25 G/44O IU)), QD
  2. XGEVA [Suspect]
     Active Substance: DENOSUMAB
     Indication: PRODUCT USED FOR UNKNOWN INDICATION
     Dosage: 120 MG, Q4WK
     Route: 058
     Dates: start: 20140704

REACTIONS (4)
  - Ejection fraction abnormal [Unknown]
  - Inappropriate schedule of drug administration [Unknown]
  - Breast cancer metastatic [Unknown]
  - Back pain [Unknown]

NARRATIVE: CASE EVENT DATE: 20140714
